FAERS Safety Report 14459772 (Version 3)
Quarter: 2018Q1

REPORT INFORMATION
  Report Type: Report from Study
  Country: None (occurrence: US)
  Receive Date: 20180130
  Receipt Date: 20180222
  Transmission Date: 20180509
  Serious: Yes (Hospitalization, Other)
  Sender: FDA-Public Use
  Company Number: US-ABBVIE-18K-163-2238696-00

PATIENT
  Age: 60 Year
  Sex: Female
  Weight: 82.17 kg

DRUGS (2)
  1. HUMIRA [Suspect]
     Active Substance: ADALIMUMAB
     Indication: CROHN^S DISEASE
     Route: 058
     Dates: start: 20170927, end: 20180118
  2. CARVEDILOL. [Concomitant]
     Active Substance: CARVEDILOL
     Indication: HYPERTENSION

REACTIONS (8)
  - Ileostomy [Recovering/Resolving]
  - Gastrointestinal stoma complication [Recovering/Resolving]
  - Weight decreased [Not Recovered/Not Resolved]
  - Swelling face [Recovered/Resolved]
  - Impaired healing [Not Recovered/Not Resolved]
  - Intestinal perforation [Recovering/Resolving]
  - Dyspepsia [Recovering/Resolving]
  - Asthenia [Not Recovered/Not Resolved]

NARRATIVE: CASE EVENT DATE: 2017
